FAERS Safety Report 18228313 (Version 5)
Quarter: 2024Q3

REPORT INFORMATION
  Report Type: Report from Study
  Country: CO (occurrence: CO)
  Receive Date: 20200903
  Receipt Date: 20240923
  Transmission Date: 20241017
  Serious: Yes (Other)
  Sender: NOVARTIS
  Company Number: CO-NOVARTISPH-NVSC2020CO240059

PATIENT
  Age: 41 Year
  Sex: Male

DRUGS (3)
  1. COSENTYX [Suspect]
     Active Substance: SECUKINUMAB
     Indication: Psoriasis
     Dosage: 300 MG, QMO
     Route: 058
     Dates: start: 20180205
  2. COSENTYX [Suspect]
     Active Substance: SECUKINUMAB
     Dosage: 300 MG, QMO
     Route: 058
     Dates: start: 20180526
  3. COSENTYX [Suspect]
     Active Substance: SECUKINUMAB
     Dosage: 300 MG, QMO
     Route: 058

REACTIONS (10)
  - SARS-CoV-2 test positive [Unknown]
  - Cough [Unknown]
  - Pyrexia [Unknown]
  - Malaise [Recovering/Resolving]
  - Viral infection [Unknown]
  - Influenza [Unknown]
  - Abdominal pain upper [Unknown]
  - Illness [Unknown]
  - Diarrhoea [Unknown]
  - Product prescribing error [Unknown]

NARRATIVE: CASE EVENT DATE: 20200701
